FAERS Safety Report 23541901 (Version 1)
Quarter: 2024Q1

REPORT INFORMATION
  Report Type: Spontaneous
  Country: US (occurrence: None)
  Receive Date: 20240220
  Receipt Date: 20240220
  Transmission Date: 20240410
  Serious: No
  Sender: FDA-Public Use
  Company Number: 2024A030757

PATIENT
  Sex: Female

DRUGS (1)
  1. TEZSPIRE [Suspect]
     Active Substance: TEZEPELUMAB-EKKO

REACTIONS (6)
  - Urticaria [Unknown]
  - Pruritus [Unknown]
  - Chest discomfort [Unknown]
  - Secretion discharge [Unknown]
  - Injection site erythema [Unknown]
  - Injection site swelling [Unknown]
